FAERS Safety Report 8033098-2 (Version None)
Quarter: 2012Q1

REPORT INFORMATION
  Report Type: 
  Country: None (occurrence: None)
  Receive Date: 20120110
  Receipt Date: 20120110
  Transmission Date: 20120608
  Serious: Yes (Other)
  Sender: FDA-Public Use
  Company Number: None

PATIENT
  Age: 68 Year
  Sex: Male

DRUGS (1)
  1. LEVOFLOXACIN [Suspect]
     Dosage: 1 TABLET
     Route: 048
     Dates: start: 20111128, end: 20111207

REACTIONS (4)
  - MUSCULAR WEAKNESS [None]
  - ARTHRALGIA [None]
  - BACK PAIN [None]
  - PAIN IN EXTREMITY [None]
